FAERS Safety Report 10030178 (Version 1)
Quarter: 2014Q1

REPORT INFORMATION
  Report Type: Spontaneous
  Country: US (occurrence: US)
  Receive Date: 20140323
  Receipt Date: 20140323
  Transmission Date: 20141002
  Serious: No
  Sender: FDA-Public Use
  Company Number: US-ALLERGAN-1310239US

PATIENT
  Age: 83 Year
  Sex: Female

DRUGS (2)
  1. LATISSE 0.03% [Suspect]
     Indication: GROWTH OF EYELASHES
     Dosage: 2 GTT, QHS
     Route: 061
     Dates: start: 20130506, end: 20130708
  2. SYSTANE [Concomitant]
     Indication: DRY EYE
     Dosage: 2 GTT, QAM
     Route: 047

REACTIONS (8)
  - Foreign body in eye [Unknown]
  - Eye disorder [Unknown]
  - Periorbital contusion [Unknown]
  - Eye irritation [Unknown]
  - Dry eye [Unknown]
  - Eye irritation [Unknown]
  - Vision blurred [Unknown]
  - Vision blurred [Unknown]
